FAERS Safety Report 15417528 (Version 1)
Quarter: 2018Q4

REPORT INFORMATION
  Report Type: Spontaneous
  Country: US (occurrence: US)
  Receive Date: 20180924
  Receipt Date: 20180924
  Transmission Date: 20190204
  Serious: Yes (Other)
  Sender: FDA-Public Use
  Company Number: US-AMERIGEN PHARMACEUTICALS, INC-2018AMG000021

PATIENT

DRUGS (2)
  1. TEMOZOLOMIDE UNKNOWN [Suspect]
     Active Substance: TEMOZOLOMIDE
     Indication: NEOPLASM RECURRENCE
     Dosage: UNK
     Route: 065
  2. TEMOZOLOMIDE UNKNOWN [Suspect]
     Active Substance: TEMOZOLOMIDE
     Indication: MALIGNANT GLIOMA

REACTIONS (4)
  - Skin infection [Unknown]
  - Thrombocytopenia [Unknown]
  - Fatigue [Unknown]
  - Insomnia [Unknown]
